FAERS Safety Report 13025794 (Version 1)
Quarter: 2016Q4

REPORT INFORMATION
  Report Type: Spontaneous
  Country: GB (occurrence: GB)
  Receive Date: 20161214
  Receipt Date: 20161214
  Transmission Date: 20170207
  Serious: Yes (Hospitalization, Other)
  Sender: FDA-Public Use
  Company Number: GB-SUN PHARMACEUTICAL INDUSTRIES LTD-2016RR-129164

PATIENT
  Age: 66 Year
  Sex: Female

DRUGS (1)
  1. OCTREOTIDE. [Suspect]
     Active Substance: OCTREOTIDE
     Indication: NEUROENDOCRINE TUMOUR
     Dosage: 2500 MCG/ DAY (QD)
     Route: 058
     Dates: start: 200804

REACTIONS (8)
  - Dehydration [Unknown]
  - Malignant neoplasm progression [Unknown]
  - Acute kidney injury [Unknown]
  - Diarrhoea [Not Recovered/Not Resolved]
  - Pneumonia [Unknown]
  - Hypokalaemia [Unknown]
  - Neoplasm progression [Unknown]
  - Acidosis [Unknown]

NARRATIVE: CASE EVENT DATE: 200805
